FAERS Safety Report 13895191 (Version 1)
Quarter: 2017Q3

REPORT INFORMATION
  Report Type: Spontaneous
  Country: US (occurrence: US)
  Receive Date: 20170823
  Receipt Date: 20170823
  Transmission Date: 20171127
  Serious: Yes (Other)
  Sender: FDA-Public Use
  Company Number: US-WEST-WARD PHARMACEUTICALS CORP.-US-H14001-17-03061

PATIENT
  Age: 87 Year
  Sex: Male

DRUGS (5)
  1. AMANTADINE. [Interacting]
     Active Substance: AMANTADINE HYDROCHLORIDE
     Indication: PRODUCT USED FOR UNKNOWN INDICATION
     Route: 065
  2. GALANTAMINE. [Interacting]
     Active Substance: GALANTAMINE
     Route: 065
  3. GALANTAMINE. [Suspect]
     Active Substance: GALANTAMINE
     Indication: MEMORY IMPAIRMENT
     Route: 065
  4. TRAZODONE [Concomitant]
     Active Substance: TRAZODONE HYDROCHLORIDE
     Indication: SLEEP DISORDER
     Route: 065
  5. PROVIGIL [Interacting]
     Active Substance: MODAFINIL
     Indication: PRODUCT USED FOR UNKNOWN INDICATION
     Route: 065

REACTIONS (6)
  - Drug withdrawal syndrome [Unknown]
  - Hallucination, visual [Unknown]
  - Mental status changes [Unknown]
  - Cogwheel rigidity [Unknown]
  - Drug interaction [Unknown]
  - Tremor [Unknown]
